FAERS Safety Report 20629183 (Version 1)
Quarter: 2022Q1

REPORT INFORMATION
  Report Type: Spontaneous
  Country: US (occurrence: US)
  Receive Date: 20220323
  Receipt Date: 20220323
  Transmission Date: 20220423
  Serious: Yes (Other)
  Sender: FDA-Public Use
  Company Number: US-AMERICAN REGENT INC-2022000797

PATIENT
  Age: 7 Decade
  Sex: Female

DRUGS (1)
  1. CYANOCOBALAMIN [Suspect]
     Active Substance: CYANOCOBALAMIN
     Indication: Vitamin B12 decreased
     Dosage: UNK, SINGLE
     Route: 065
     Dates: start: 2018, end: 2018

REACTIONS (6)
  - Feeling abnormal [Recovered/Resolved]
  - Bedridden [Recovered/Resolved]
  - Disorientation [Recovered/Resolved]
  - Malaise [Recovered/Resolved]
  - Dizziness [Recovered/Resolved]
  - Nausea [Recovered/Resolved]

NARRATIVE: CASE EVENT DATE: 20180101
